FAERS Safety Report 6445503-3 (Version None)
Quarter: 2009Q4

REPORT INFORMATION
  Report Type: 
  Country: None (occurrence: None)
  Receive Date: 20091118
  Receipt Date: 20090915
  Transmission Date: 20100525
  Serious: Yes (Hospitalization)
  Sender: FDA-Public Use
  Company Number: GB-PFIZER INC-2009226193

PATIENT
  Age: 42 Year
  Sex: Male

DRUGS (3)
  1. ESTRADIOL AND ESTRADIOL CIPIONATE [Suspect]
     Indication: TRANSGENDER HORMONAL THERAPY
     Dosage: 100 MG, 1X/DAY
     Route: 048
  2. SPIRONOLACTONE [Suspect]
     Indication: TRANSGENDER HORMONAL THERAPY
     Dosage: 200 MG, 1X/DAY
     Route: 062
  3. ETHINYL ESTRADIOL [Suspect]
     Indication: TRANSGENDER HORMONAL THERAPY
     Dosage: 30 UG, 1X/DAY
     Route: 048

REACTIONS (2)
  - OFF LABEL USE [None]
  - PULMONARY EMBOLISM [None]
